FAERS Safety Report 7059547-4 (Version None)
Quarter: 2010Q4

REPORT INFORMATION
  Report Type: 
  Country: None (occurrence: None)
  Receive Date: 20101025
  Receipt Date: 20101020
  Transmission Date: 20110411
  Serious: Yes (Death)
  Sender: FDA-Public Use
  Company Number: US-SHIRE-ALL1-2010-05449

PATIENT
  Age: 54 Year
  Sex: Female

DRUGS (1)
  1. FOSRENOL [Suspect]
     Indication: HYPERPHOSPHATAEMIA
     Dosage: UNK MG, UNKNOWN
     Route: 048

REACTIONS (3)
  - BLOOD PHOSPHORUS INCREASED [None]
  - CARDIAC ARREST [None]
  - DRUG EFFECT DECREASED [None]
